FAERS Safety Report 7948425-1 (Version None)
Quarter: 2011Q4

REPORT INFORMATION
  Report Type: 
  Country: None (occurrence: None)
  Receive Date: 20111130
  Receipt Date: 20110104
  Transmission Date: 20120403
  Serious: Yes (Death, Hospitalization, Other)
  Sender: FDA-Public Use
  Company Number: US-BAYER-200825070NA

PATIENT
  Age: 78 Year
  Sex: Female
  Weight: 77.098 kg

DRUGS (43)
  1. TRASYLOL [Suspect]
     Dosage: 1 ML INITIAL TEST DOSE
     Route: 042
     Dates: start: 20050516, end: 20050516
  2. ROCEPHIN [Concomitant]
     Dosage: UNK
     Route: 042
     Dates: start: 20050507
  3. RED BLOOD CELLS [Concomitant]
     Dosage: 2 U
     Route: 042
     Dates: start: 20050601
  4. NORVASC [Concomitant]
     Dosage: 5 MG, QD
     Route: 048
  5. DIOVAN [Concomitant]
     Dosage: 80 MG, QD
     Route: 048
     Dates: start: 20050416
  6. BIAXIN [Concomitant]
     Dosage: 80/400
  7. RED BLOOD CELLS [Concomitant]
     Dosage: 1 U
     Route: 042
     Dates: start: 20050602
  8. ATENOLOL [Concomitant]
     Dosage: 50 MG, QD
     Route: 048
  9. LASIX [Concomitant]
     Dosage: 40 MG, QD
     Route: 042
     Dates: start: 20050417
  10. PHENYLEPHRINE HCL [Concomitant]
     Dosage: UNK
     Dates: start: 20050516
  11. EPINEPHRINE [Concomitant]
     Dosage: UNK
     Route: 042
     Dates: start: 20050516, end: 20050516
  12. RED BLOOD CELLS [Concomitant]
     Dosage: 3 U
     Route: 042
     Dates: start: 20050516
  13. TRASYLOL [Suspect]
     Indication: AORTIC VALVE REPLACEMENT
     Dosage: 200 ML, UNK
     Dates: start: 20050516, end: 20050516
  14. FLUCONAZOLE [Concomitant]
     Dosage: 100 MG, UNK
  15. ROCEPHIN [Concomitant]
     Dosage: 1 G, QD
     Route: 042
     Dates: start: 20050416, end: 20050421
  16. RED BLOOD CELLS [Concomitant]
     Dosage: 3 U
     Route: 042
     Dates: start: 20050506
  17. RED BLOOD CELLS [Concomitant]
     Dosage: 1 U
     Route: 042
     Dates: start: 20050507
  18. RED BLOOD CELLS [Concomitant]
     Dosage: 1 U
     Route: 042
     Dates: start: 20050515
  19. TRASYLOL [Suspect]
     Dosage: 50 CC/HOUR
     Route: 042
     Dates: start: 20050516, end: 20050516
  20. ACTOS [Concomitant]
     Dosage: 30 MG, QD
  21. COUMADIN [Concomitant]
     Dosage: 4 MG, QD
     Route: 048
  22. PEPCID [Concomitant]
     Dosage: 20 MG, QD
  23. DIABETA [Concomitant]
     Dosage: 5 MG, UNK
  24. HUMIBID LA [Concomitant]
  25. RED BLOOD CELLS [Concomitant]
     Dosage: 1 U
     Route: 042
     Dates: start: 20050519
  26. ZOCOR [Concomitant]
     Dosage: 20 MG, QD
  27. PRILOSEC [Concomitant]
  28. HEPARIN [Concomitant]
     Dosage: 30000 U, UNK
     Dates: start: 20050516
  29. AZITHROMYCIN [Concomitant]
     Dosage: 500 MG
     Route: 042
     Dates: start: 20050507, end: 20050512
  30. AZACTAM [Concomitant]
     Dosage: UNK
     Dates: start: 20050519
  31. OPTIRAY 160 [Concomitant]
     Indication: CATHETERISATION CARDIAC
     Dosage: 75 CC
     Dates: start: 20050513
  32. OPTIRAY 160 [Concomitant]
     Dosage: 50 CC
     Dates: start: 20050513
  33. RED BLOOD CELLS [Concomitant]
     Dosage: 1 U
     Route: 042
     Dates: start: 20050518
  34. PERSANTINE [Concomitant]
     Dosage: 50 MG, TID
     Route: 048
  35. ACETAMINOPHEN [Concomitant]
     Dosage: 650 MG
     Route: 048
  36. PROTAMINE SULFATE [Concomitant]
     Dosage: UNK
     Dates: start: 20050516, end: 20050516
  37. RED BLOOD CELLS [Concomitant]
     Dosage: 1 U
     Route: 042
     Dates: start: 20050527
  38. VANCOMYCIN [Concomitant]
     Dosage: 1 G, UNK
     Route: 042
     Dates: start: 20050516
  39. LASIX [Concomitant]
     Dosage: 20 MG, BID
     Dates: start: 20050415
  40. TELITHROMYCIN [Concomitant]
     Dosage: 400 MG / 2 TABLETS, QD
     Route: 048
     Dates: start: 20050416
  41. DEXAMETHASONE [Concomitant]
     Dosage: 10 MG, TID
     Route: 042
     Dates: start: 20050416
  42. LOVENOX [Concomitant]
     Dosage: 80 MG, BID
     Route: 058
     Dates: start: 20050425
  43. PRIMACOR [Concomitant]
     Dosage: 0.1 MCG/HOUR
     Route: 042
     Dates: start: 20050516, end: 20050516

REACTIONS (12)
  - PAIN [None]
  - RENAL FAILURE [None]
  - CARDIAC FAILURE [None]
  - RENAL IMPAIRMENT [None]
  - ADVERSE EVENT [None]
  - UNEVALUABLE EVENT [None]
  - EMOTIONAL DISTRESS [None]
  - ACTIVITIES OF DAILY LIVING IMPAIRED [None]
  - ANHEDONIA [None]
  - ANXIETY [None]
  - FEAR OF DEATH [None]
  - INJURY [None]
